FAERS Safety Report 12160925 (Version 2)
Quarter: 2016Q2

REPORT INFORMATION
  Report Type: Spontaneous
  Country: MX (occurrence: MX)
  Receive Date: 20160308
  Receipt Date: 20160418
  Transmission Date: 20160815
  Serious: Yes (Other)
  Sender: FDA-Public Use
  Company Number: MX-BAXTER-2016BAX009920

PATIENT
  Age: 27 Year
  Sex: Female
  Weight: 56 kg

DRUGS (2)
  1. DEXTROSA AL 5% EN AGUA INYECTABLE BAXTER [Suspect]
     Active Substance: DEXTROSE\WATER
     Indication: VENOUS RECANALISATION
     Route: 042
     Dates: start: 20160211, end: 20160211
  2. DEXTROSA AL 5% EN AGUA INYECTABLE BAXTER [Suspect]
     Active Substance: DEXTROSE\WATER
     Indication: CAESAREAN SECTION

REACTIONS (6)
  - Rash [Recovered/Resolved]
  - Exposure during pregnancy [Recovered/Resolved]
  - Cough [Recovered/Resolved]
  - Dyspnoea [Recovered/Resolved]
  - Chest discomfort [Recovered/Resolved]
  - Throat irritation [Recovered/Resolved]

NARRATIVE: CASE EVENT DATE: 20160211
